FAERS Safety Report 7438048-5 (Version None)
Quarter: 2011Q2

REPORT INFORMATION
  Report Type: 
  Country: None (occurrence: None)
  Receive Date: 20110426
  Receipt Date: 20110414
  Transmission Date: 20111010
  Serious: Yes (Other)
  Sender: FDA-Public Use
  Company Number: PHHY2011CA31393

PATIENT
  Age: 53 Year
  Sex: Female

DRUGS (1)
  1. ESTRADERM [Suspect]
     Dosage: UNK
     Route: 062

REACTIONS (4)
  - PALPITATIONS [None]
  - DYSPNOEA [None]
  - CHEST PAIN [None]
  - OESOPHAGEAL SPASM [None]
